FAERS Safety Report 21343377 (Version 1)
Quarter: 2022Q3

REPORT INFORMATION
  Report Type: Spontaneous
  Country: FR (occurrence: FR)
  Receive Date: 20220916
  Receipt Date: 20220916
  Transmission Date: 20221026
  Serious: Yes (Disabling)
  Sender: FDA-Public Use
  Company Number: None

PATIENT
  Age: 62 Year
  Sex: Male

DRUGS (8)
  1. METHOTREXATE [Suspect]
     Active Substance: METHOTREXATE
     Indication: Burkitt^s lymphoma
     Dosage: UNIT DOSE :  90 MG  , FREQUENCY TIME : 1 TOTAL   , THERAPY END DATE : NASK
     Dates: start: 20220407
  2. PREDNISOLONE [Suspect]
     Active Substance: PREDNISOLONE
     Indication: Burkitt^s lymphoma
     Dosage: UNIT DOSE : 275 MG   , FREQUENCY TIME : 1 MONTH   , THERAPY END DATE : NASK
     Dates: start: 20220408
  3. VALACYCLOVIR HYDROCHLORIDE [Suspect]
     Active Substance: VALACYCLOVIR HYDROCHLORIDE
     Indication: Prophylaxis
     Dosage: UNIT DOSE : 1000 MG   , FREQUENCY TIME : 1 DAY   , THERAPY END DATE : NASK
     Dates: start: 20220408
  4. VINCRISTINE SULFATE [Suspect]
     Active Substance: VINCRISTINE SULFATE
     Indication: Burkitt^s lymphoma
     Dosage: VINCRISTINE (SULFATE DE) , UNIT DOSE : 2 MG   , FREQUENCY TIME : 1 TOTAL   , DURATION : 7 DAYS
     Dates: start: 20220408, end: 20220415
  5. CYCLOPHOSPHAMIDE [Suspect]
     Active Substance: CYCLOPHOSPHAMIDE
     Indication: Burkitt^s lymphoma
     Dosage: UNIT DOSE : 8000 MG   , FREQUENCY TIME :  1 TOTAL  , THERAPY END DATE : NASK
     Dates: start: 20220409
  6. METHYLPREDNISOLONE [Suspect]
     Active Substance: METHYLPREDNISOLONE
     Indication: Burkitt^s lymphoma
     Dosage: UNIT DOSE : 360 MG   , FREQUENCY TIME : 1 TOTAL   , THERAPY END DATE : NASK
     Dates: start: 20220411
  7. BACTRIM [Suspect]
     Active Substance: SULFAMETHOXAZOLE\TRIMETHOPRIM
     Indication: Prophylaxis
     Dosage: UNIT DOSE : 3 DF    , FREQUENCY TIME :  1 WEEKS  , THERAPY END DATE : NASK
     Dates: start: 20220408
  8. CYTARABINE [Suspect]
     Active Substance: CYTARABINE
     Indication: Burkitt^s lymphoma
     Dosage: UNIT DOSE : 270 MG , FREQUENCY TIME : 1 TOTAL , THERAPY END DATE : NASK
     Dates: start: 20220411

REACTIONS (1)
  - Neuropathy peripheral [Not Recovered/Not Resolved]

NARRATIVE: CASE EVENT DATE: 20220412
